FAERS Safety Report 23913487 (Version 1)
Quarter: 2024Q2

REPORT INFORMATION
  Report Type: Spontaneous
  Country: CR (occurrence: None)
  Receive Date: 20240529
  Receipt Date: 20240529
  Transmission Date: 20240716
  Serious: Yes (Other)
  Sender: FDA-Public Use
  Company Number: CR-ROCHE-3372932

PATIENT
  Age: 61 Year
  Sex: Male

DRUGS (1)
  1. ERIVEDGE [Suspect]
     Active Substance: VISMODEGIB
     Indication: Basal cell carcinoma
     Route: 065

REACTIONS (8)
  - Acute kidney injury [Unknown]
  - Alopecia [Unknown]
  - Taste disorder [Unknown]
  - Decreased appetite [Unknown]
  - Muscle spasms [Unknown]
  - Weight decreased [Unknown]
  - Diarrhoea [Unknown]
  - Dehydration [Unknown]
